FAERS Safety Report 8489880-0 (Version None)
Quarter: 2012Q3

REPORT INFORMATION
  Report Type: 
  Country: None (occurrence: None)
  Receive Date: 20120705
  Receipt Date: 20120629
  Transmission Date: 20120928
  Serious: Yes (Other)
  Sender: FDA-Public Use
  Company Number: PHHY2012ZA050871

PATIENT
  Age: 46 Year
  Sex: Male

DRUGS (2)
  1. SERETIDE EVOHALER [Concomitant]
     Indication: ASTHMA
  2. HALOPERIDOL [Suspect]
     Indication: SCHIZOPHRENIA
     Dosage: 12.5 MG DAILY
     Route: 048
     Dates: start: 20010101

REACTIONS (5)
  - SINUS DISORDER [None]
  - POLYP [None]
  - NASAL CONGESTION [None]
  - RHINORRHOEA [None]
  - WRONG TECHNIQUE IN DRUG USAGE PROCESS [None]
